FAERS Safety Report 7734026-7 (Version None)
Quarter: 2011Q3

REPORT INFORMATION
  Report Type: 
  Country: None (occurrence: None)
  Receive Date: 20110901
  Receipt Date: 20110817
  Transmission Date: 20111222
  Serious: Yes (Hospitalization, Other)
  Sender: FDA-Public Use
  Company Number: 2011MA003509

PATIENT
  Sex: Female
  Weight: 78.4723 kg

DRUGS (60)
  1. FLEXERIL [Concomitant]
  2. ALLEGRA [Concomitant]
  3. CELEXA [Concomitant]
  4. CALCIUM CARBONATE [Concomitant]
  5. COZAAR [Concomitant]
  6. ESTROGENIC SUBSTANCE [Concomitant]
  7. XANAX [Concomitant]
  8. COUGH SYRUP [Concomitant]
  9. ZOLOFT [Concomitant]
  10. CLINDAMYCIN [Concomitant]
  11. ESTRADIOL [Concomitant]
  12. SOMA [Concomitant]
  13. PREVACID [Concomitant]
  14. PULMICORT [Concomitant]
  15. ROBAXIN [Concomitant]
  16. HYDROCODONE [Concomitant]
  17. VITAMIN D [Concomitant]
  18. TEMAZEPAM [Concomitant]
  19. SIMVASTATIN [Concomitant]
  20. COREG [Concomitant]
  21. TERBINAFINE HCL [Concomitant]
  22. CIPROFLOXACIN [Concomitant]
  23. HYDROCHLOROTHIAZIDE [Concomitant]
  24. LIPITOR [Concomitant]
  25. SYNTHROID [Concomitant]
  26. AMBIEN [Concomitant]
  27. WELLBUTRIN [Concomitant]
  28. TRAZODONE HCL [Concomitant]
  29. HYZAAR [Concomitant]
  30. TOPROL-XL [Concomitant]
  31. MAXAIR [Concomitant]
  32. DARVOCET-N 50 [Concomitant]
  33. LEVAQUIN [Concomitant]
  34. VALIUM [Concomitant]
  35. RANITIDINE [Concomitant]
  36. MIRALAX [Concomitant]
  37. FLAGYL [Concomitant]
  38. FLONASE [Concomitant]
  39. HYTRIN [Concomitant]
  40. ZOCOR [Concomitant]
  41. KLONOPIN [Concomitant]
  42. REQUIP [Concomitant]
  43. MECLIZINE [Concomitant]
  44. MICARDIS [Concomitant]
  45. DIOVAN [Concomitant]
  46. METOCLOPRAMIDE [Suspect]
     Indication: GASTROOESOPHAGEAL REFLUX DISEASE
     Dosage: 10 MG;TID;PO
     Route: 048
     Dates: start: 20030411, end: 20100101
  47. METOCLOPRAMIDE [Suspect]
     Indication: ABDOMINAL SYMPTOM
     Dosage: 10 MG;TID;PO
     Route: 048
     Dates: start: 20030411, end: 20100101
  48. NEXIUM [Concomitant]
  49. NAPROSYN [Concomitant]
  50. NASONEX [Concomitant]
  51. LORTAB [Concomitant]
  52. PREMARIN [Concomitant]
  53. PHENERGAN HCL [Concomitant]
  54. VERPAMIL HCL [Concomitant]
  55. PLAVIX [Concomitant]
  56. BENTYL [Concomitant]
  57. TYLENOL-500 [Concomitant]
  58. MEDROL [Concomitant]
  59. LISINOPRIL [Concomitant]
  60. CYANOCOBALAMIN [Concomitant]

REACTIONS (73)
  - EMOTIONAL DISORDER [None]
  - DYSARTHRIA [None]
  - MUSCULOSKELETAL STIFFNESS [None]
  - ANXIETY [None]
  - PAIN [None]
  - HYPERLIPIDAEMIA [None]
  - ASTHMA [None]
  - OEDEMA [None]
  - BACK PAIN [None]
  - DIZZINESS [None]
  - PROCTALGIA [None]
  - EXTRAPYRAMIDAL DISORDER [None]
  - RESTLESS LEGS SYNDROME [None]
  - DYSKINESIA [None]
  - PRODUCTIVE COUGH [None]
  - CEREBRAL SMALL VESSEL ISCHAEMIC DISEASE [None]
  - PANIC ATTACK [None]
  - ANAEMIA [None]
  - ABDOMINAL DISTENSION [None]
  - RADICULOPATHY [None]
  - PROTRUSION TONGUE [None]
  - GASTROOESOPHAGEAL REFLUX DISEASE [None]
  - REGURGITATION [None]
  - SOMNOLENCE [None]
  - DEPRESSION [None]
  - VERTIGO [None]
  - DERMATOPHYTOSIS [None]
  - DECREASED APPETITE [None]
  - MULTIPLE ALLERGIES [None]
  - PARAESTHESIA [None]
  - TREMOR [None]
  - SCIATICA [None]
  - SLEEP APNOEA SYNDROME [None]
  - UPPER RESPIRATORY TRACT INFECTION [None]
  - HOT FLUSH [None]
  - OSTEOPOROSIS [None]
  - EMPHYSEMA [None]
  - LABYRINTHITIS [None]
  - TARDIVE DYSKINESIA [None]
  - INJURY [None]
  - ASTHENIA [None]
  - MUSCULOSKELETAL PAIN [None]
  - BALANCE DISORDER [None]
  - IRRITABLE BOWEL SYNDROME [None]
  - FRACTURED COCCYX [None]
  - WHEEZING [None]
  - SNORING [None]
  - NOCTURIA [None]
  - CONTUSION [None]
  - CARDIOMEGALY [None]
  - SPINAL OSTEOARTHRITIS [None]
  - POOR QUALITY SLEEP [None]
  - CEREBROVASCULAR ACCIDENT [None]
  - MEMORY IMPAIRMENT [None]
  - PARKINSON'S DISEASE [None]
  - DRY MOUTH [None]
  - SCOLIOSIS [None]
  - OBESITY [None]
  - MALAISE [None]
  - ARTHROPATHY [None]
  - BLOOD PRESSURE INCREASED [None]
  - ECONOMIC PROBLEM [None]
  - VITAMIN B12 DEFICIENCY [None]
  - FALL [None]
  - CHEST DISCOMFORT [None]
  - NASAL CONGESTION [None]
  - GAIT DISTURBANCE [None]
  - MYOCARDIAL INFARCTION [None]
  - OVERDOSE [None]
  - HYPOTHYROIDISM [None]
  - DRUG ABUSER [None]
  - FLATULENCE [None]
  - RHINITIS [None]
